FAERS Safety Report 19770599 (Version 1)
Quarter: 2021Q3

REPORT INFORMATION
  Report Type: Spontaneous
  Country: US (occurrence: US)
  Receive Date: 20210831
  Receipt Date: 20210831
  Transmission Date: 20211014
  Serious: Yes (Disabling)
  Sender: FDA-Public Use
  Company Number: None

PATIENT
  Age: 33 Year
  Sex: Female
  Weight: 76.5 kg

DRUGS (7)
  1. BIRTH CONTROL [Concomitant]
     Active Substance: UNSPECIFIED INGREDIENT
  2. PREDNISONE. [Concomitant]
     Active Substance: PREDNISONE
  3. INFLECTRA [Suspect]
     Active Substance: INFLIXIMAB-DYYB
     Indication: CROHN^S DISEASE
     Dosage: ?          OTHER FREQUENCY:IV EVERY 8 WEEKS;?
     Route: 042
     Dates: start: 20210607, end: 20210730
  4. CEPHALEXIN. [Concomitant]
     Active Substance: CEPHALEXIN
  5. B?12 SUPPLEMENT [Concomitant]
  6. KEIFER PROBIOTIC [Concomitant]
  7. MULTI?VITAMIN [Concomitant]
     Active Substance: .ALPHA.-TOCOPHEROL ACETATE, DL-\ASCORBIC ACID\CYANOCOBALAMIN\FLUORIDE ION\FOLIC ACID\NIACIN\PYRIDOXINE\RIBOFLAVIN\THIAMINE\VITAMIN A\VITAMIN D

REACTIONS (6)
  - Inflammation [None]
  - Pruritus [None]
  - Alopecia [None]
  - Emotional distress [None]
  - Skin exfoliation [None]
  - Purulence [None]

NARRATIVE: CASE EVENT DATE: 20210814
